FAERS Safety Report 22006014 (Version 2)
Quarter: 2023Q1

REPORT INFORMATION
  Report Type: Spontaneous
  Country: ID (occurrence: ID)
  Receive Date: 20230217
  Receipt Date: 20230221
  Transmission Date: 20230417
  Serious: Yes (Hospitalization, Other)
  Sender: FDA-Public Use
  Company Number: ID-MLMSERVICE-20230206-4089443-1

PATIENT
  Age: 24 Year
  Sex: Female

DRUGS (1)
  1. METHYLPREDNISOLONE [Suspect]
     Active Substance: METHYLPREDNISOLONE
     Indication: Aphthous ulcer
     Dosage: 4 MG, 2X/DAY
     Route: 048

REACTIONS (6)
  - Self-medication [Unknown]
  - Condition aggravated [Recovering/Resolving]
  - Herpes simplex reactivation [Recovering/Resolving]
  - Oral herpes [Recovering/Resolving]
  - Erythema multiforme [Recovering/Resolving]
  - Product use in unapproved indication [Unknown]
